FAERS Safety Report 23870608 (Version 1)
Quarter: 2024Q2

REPORT INFORMATION
  Report Type: Spontaneous
  Country: FR (occurrence: FR)
  Receive Date: 20240518
  Receipt Date: 20240518
  Transmission Date: 20240716
  Serious: Yes (Other)
  Sender: FDA-Public Use
  Company Number: None

PATIENT
  Age: 34 Year
  Sex: Male

DRUGS (2)
  1. PREGABALIN [Suspect]
     Active Substance: PREGABALIN
     Dosage: 900 MG, QD, 900MG/D (6 X 150MG CPS)
     Route: 048
     Dates: start: 202306
  2. ZOLPIDEM TARTRATE [Suspect]
     Active Substance: ZOLPIDEM TARTRATE
     Dosage: 2 DF, QD, 2 CPS IN THE EVENING
     Route: 048
     Dates: start: 2023

REACTIONS (1)
  - Drug use disorder [Not Recovered/Not Resolved]
